FAERS Safety Report 7335119-9 (Version None)
Quarter: 2011Q1

REPORT INFORMATION
  Report Type: 
  Country: None (occurrence: None)
  Receive Date: 20110307
  Receipt Date: 20101123
  Transmission Date: 20110831
  Serious: Yes (Hospitalization, Other)
  Sender: FDA-Public Use
  Company Number: US-BAYER-201038256NA

PATIENT
  Sex: Female
  Weight: 57 kg

DRUGS (6)
  1. YASMIN [Suspect]
     Indication: ACNE
     Dosage: UNK
     Dates: start: 20020101, end: 20070101
  2. YASMIN [Suspect]
     Indication: HORMONE REPLACEMENT THERAPY
  3. OCELLA [Suspect]
     Indication: HORMONE REPLACEMENT THERAPY
  4. YAZ [Suspect]
     Indication: ACNE
  5. YAZ [Suspect]
     Indication: HORMONE REPLACEMENT THERAPY
  6. MULTIVITAMIN [Concomitant]

REACTIONS (10)
  - CHOLECYSTITIS [None]
  - PANCREATITIS ACUTE [None]
  - BACK PAIN [None]
  - BILE DUCT STONE [None]
  - PANCREATOLITHIASIS [None]
  - ABDOMINAL PAIN UPPER [None]
  - DYSPEPSIA [None]
  - NAUSEA [None]
  - GASTRITIS [None]
  - ABDOMINAL TENDERNESS [None]
